FAERS Safety Report 6188522-7 (Version None)
Quarter: 2009Q2

REPORT INFORMATION
  Report Type: 
  Country: None (occurrence: None)
  Receive Date: 20090511
  Receipt Date: 20090504
  Transmission Date: 20091009
  Serious: Yes (Hospitalization)
  Sender: FDA-Public Use
  Company Number: 006335

PATIENT
  Age: 2 Year
  Sex: Male

DRUGS (4)
  1. BUSULFEX [Suspect]
     Dosage: 4 MG/KG, QD, INTRAVENOUS
     Route: 042
  2. FLUDARABINE PHOSPHATE [Suspect]
     Dosage: 30 MG/M2, QD, INTRAVENOUS
     Route: 042
  3. METHOTREXATE [Concomitant]
  4. TACROLIMUS [Concomitant]

REACTIONS (2)
  - ACUTE GRAFT VERSUS HOST DISEASE IN INTESTINE [None]
  - HUMAN HERPES VIRUS 6 SEROLOGY POSITIVE [None]
